FAERS Safety Report 4604139-7 (Version None)
Quarter: 2005Q1

REPORT INFORMATION
  Report Type: 
  Country: None (occurrence: None)
  Receive Date: 20050308
  Receipt Date: 20050222
  Transmission Date: 20050727
  Serious: Yes (Hospitalization)
  Sender: FDA-Public Use
  Company Number: 2005BI004133

PATIENT
  Age: 25 Year
  Sex: Female
  Weight: 89.8122 kg

DRUGS (2)
  1. AVONEX [Suspect]
     Indication: MULTIPLE SCLEROSIS
     Dosage: SEE IMAGE
     Route: 030
     Dates: start: 19960101, end: 19970701
  2. AVONEX [Suspect]
     Indication: MULTIPLE SCLEROSIS
     Dosage: SEE IMAGE
     Route: 030
     Dates: start: 19971001, end: 20000101

REACTIONS (4)
  - CONDITION AGGRAVATED [None]
  - FALL [None]
  - FIBULA FRACTURE [None]
  - MULTIPLE SCLEROSIS [None]
